FAERS Safety Report 5613210-2 (Version None)
Quarter: 2008Q1

REPORT INFORMATION
  Report Type: 
  Country: None (occurrence: None)
  Receive Date: 20080111
  Receipt Date: 20070312
  Transmission Date: 20080703
  Serious: Yes (Other)
  Sender: FDA-Public Use
  Company Number: HQWYE66603JUL04

PATIENT
  Age: 57 Year
  Sex: Female
  Weight: 80.81 kg

DRUGS (5)
  1. PREMPRO [Suspect]
     Dates: start: 19980601, end: 20020901
  2. ESTRATEST [Suspect]
  3. ESTROGENS (ESTROGENS, ) [Suspect]
  4. PREMARIN [Suspect]
  5. PROVERA [Suspect]

REACTIONS (1)
  - BREAST CANCER [None]
